FAERS Safety Report 16567432 (Version 1)
Quarter: 2019Q3

REPORT INFORMATION
  Report Type: Spontaneous
  Country: JP (occurrence: JP)
  Receive Date: 20190712
  Receipt Date: 20190712
  Transmission Date: 20191004
  Serious: Yes (Other)
  Sender: FDA-Public Use
  Company Number: JP-ASTRAZENECA-2019SF00136

PATIENT
  Sex: Female

DRUGS (3)
  1. SEROQUEL [Suspect]
     Active Substance: QUETIAPINE FUMARATE
     Indication: PRODUCT USED FOR UNKNOWN INDICATION
     Dosage: REDUCED TO 100MG/DAY
     Route: 048
  2. LIMAS [Concomitant]
     Active Substance: LITHIUM CARBONATE
     Route: 048
  3. SEROQUEL [Suspect]
     Active Substance: QUETIAPINE FUMARATE
     Indication: PRODUCT USED FOR UNKNOWN INDICATION
     Dosage: 200MG/DAY
     Route: 048

REACTIONS (4)
  - Endometrial hyperplasia [Unknown]
  - Weight decreased [Unknown]
  - Renal hypertension [Unknown]
  - Dysuria [Recovering/Resolving]
